FAERS Safety Report 16796909 (Version 1)
Quarter: 2019Q3

REPORT INFORMATION
  Report Type: Report from Study
  Country: JP (occurrence: JP)
  Receive Date: 20190911
  Receipt Date: 20190911
  Transmission Date: 20191005
  Serious: Yes (Other)
  Sender: FDA-Public Use
  Company Number: JP-GILEAD-2019-0427747

PATIENT
  Age: 28 Year
  Sex: Male

DRUGS (3)
  1. EMTRICITABINE/RILPIVIRINE/TENOFOVIR DF [Suspect]
     Active Substance: EMTRICITABINE\RILPIVIRINE\TENOFOVIR DISOPROXIL FUMARATE
     Indication: HIV INFECTION
     Dosage: 1 DOSAGE FORM, QD
     Route: 048
     Dates: start: 20150731, end: 20181001
  2. BIOFERMIN R [Concomitant]
     Active Substance: DIETARY SUPPLEMENT\PROBIOTICS
     Dosage: UNKNOWN
     Route: 048
     Dates: start: 20190308, end: 20190407
  3. EMTRICITABINE/RILPIVIRINE/TENOFOVIR ALAFENAMIDE [Suspect]
     Active Substance: EMTRICITABINE\RILPIVIRINE HYDROCHLORIDE\TENOFOVIR ALAFENAMIDE FUMARATE
     Indication: HIV INFECTION
     Dosage: 1 DOSAGE FORM, QD
     Route: 048
     Dates: start: 20150731, end: 20181001

REACTIONS (4)
  - Seasonal allergy [Recovering/Resolving]
  - Syphilis [Recovering/Resolving]
  - Dry skin [Not Recovered/Not Resolved]
  - Genital herpes simplex [Recovering/Resolving]

NARRATIVE: CASE EVENT DATE: 20160307
